FAERS Safety Report 16591379 (Version 1)
Quarter: 2019Q3

REPORT INFORMATION
  Report Type: Other
  Country: US (occurrence: US)
  Receive Date: 20190718
  Receipt Date: 20190718
  Transmission Date: 20191004
  Serious: Yes (Hospitalization, Other)
  Sender: FDA-Public Use
  Company Number: US-AMAG PHARMACEUTICALS, INC.-AMAG201903490

PATIENT
  Age: 0 Day
  Sex: Male
  Weight: 2.36 kg

DRUGS (2)
  1. MAKENA [Suspect]
     Active Substance: HYDROXYPROGESTERONE CAPROATE
     Dosage: 2 DOSES.
     Route: 064
  2. MAKENA [Suspect]
     Active Substance: HYDROXYPROGESTERONE CAPROATE
     Indication: FOETAL EXPOSURE DURING PREGNANCY
     Dosage: 250MG/ML, WEEKLY
     Route: 064
     Dates: start: 20190115, end: 20190503

REACTIONS (6)
  - Premature baby [Unknown]
  - Petechiae [Unknown]
  - Hypoglycaemia neonatal [Unknown]
  - Platelet count decreased [Not Recovered/Not Resolved]
  - Neonatal respiratory distress syndrome [Unknown]
  - Jaundice neonatal [Unknown]

NARRATIVE: CASE EVENT DATE: 20190508
